FAERS Safety Report 5940169-0 (Version None)
Quarter: 2008Q4

REPORT INFORMATION
  Report Type: 
  Country: None (occurrence: None)
  Receive Date: 20081104
  Receipt Date: 20081022
  Transmission Date: 20090506
  Serious: Yes (Other)
  Sender: FDA-Public Use
  Company Number: CN-BAYER-200828888GPV

PATIENT
  Age: 60 Year
  Sex: Male
  Weight: 45 kg

DRUGS (2)
  1. GLUCOBAY [Suspect]
     Indication: DIABETES MELLITUS
     Dosage: TOTAL DAILY DOSE: 150 MG
     Route: 048
     Dates: start: 20080604
  2. AZITHROMYCIN [Concomitant]
     Indication: CYSTITIS NONINFECTIVE
     Dosage: TOTAL DAILY DOSE: 0.75 G
     Route: 048
     Dates: start: 20081001

REACTIONS (1)
  - WEIGHT DECREASED [None]
